FAERS Safety Report 6123549-2 (Version None)
Quarter: 2009Q1

REPORT INFORMATION
  Report Type: 
  Country: None (occurrence: None)
  Receive Date: 20090318
  Receipt Date: 20090316
  Transmission Date: 20090719
  Serious: Yes (Hospitalization, Other)
  Sender: FDA-Public Use
  Company Number: FR-BRISTOL-MYERS SQUIBB COMPANY-14546212

PATIENT
  Age: 71 Year
  Sex: Female

DRUGS (7)
  1. APROVEL TABS 300 MG [Suspect]
     Indication: INFARCTION
     Route: 048
     Dates: start: 20081203, end: 20090219
  2. FUCIDINE CAP [Suspect]
     Indication: SKIN INJURY
     Dosage: 2 TABLET
     Route: 048
     Dates: start: 20090211, end: 20090216
  3. KARDEGIC [Concomitant]
     Indication: INFARCTION
     Route: 048
     Dates: start: 20081203
  4. PLAVIX [Concomitant]
     Route: 048
     Dates: start: 20081203
  5. TAHOR [Concomitant]
     Indication: MYOCARDIAL INFARCTION
     Dosage: DOSAGE FORM - TABLET
     Route: 048
     Dates: start: 20081203
  6. KREDEX [Concomitant]
     Indication: MYOCARDIAL INFARCTION
     Route: 048
     Dates: start: 20081203
  7. NEXIUM [Concomitant]
     Indication: DUODENAL ULCER
     Route: 048
     Dates: start: 20070101

REACTIONS (2)
  - RENAL FAILURE ACUTE [None]
  - VASCULAR PURPURA [None]
